FAERS Safety Report 21943534 (Version 24)
Quarter: 2025Q2

REPORT INFORMATION
  Report Type: Report from Study
  Country: US (occurrence: US)
  Receive Date: 20230202
  Receipt Date: 20250626
  Transmission Date: 20250716
  Serious: Yes (Other)
  Sender: TAKEDA
  Company Number: US-TAKEDA-2023TUS010134

PATIENT
  Sex: Female
  Weight: 102 kg

DRUGS (58)
  1. HUMAN IMMUNOGLOBULIN G [Suspect]
     Active Substance: HUMAN IMMUNOGLOBULIN G
     Indication: Hypergammaglobulinaemia
     Dosage: 18 GRAM, 1/WEEK
  2. HUMAN IMMUNOGLOBULIN G [Suspect]
     Active Substance: HUMAN IMMUNOGLOBULIN G
     Indication: Immune system disorder
     Dosage: 18 GRAM, 1/WEEK
  3. MINOCYCLINE [Suspect]
     Active Substance: MINOCYCLINE HYDROCHLORIDE
     Indication: Product used for unknown indication
  4. DIPHENHYDRAMINE [Concomitant]
     Active Substance: DIPHENHYDRAMINE
  5. DIPHENHYDRAMINE HYDROCHLORIDE [Concomitant]
     Active Substance: DIPHENHYDRAMINE HYDROCHLORIDE
  6. CYANOCOBALAMIN [Concomitant]
     Active Substance: CYANOCOBALAMIN
  7. DESVENLAFAXINE SUCCINATE [Concomitant]
     Active Substance: DESVENLAFAXINE SUCCINATE
  8. HYDROCORTISONE [Concomitant]
     Active Substance: HYDROCORTISONE
  9. HYDROCORTISONE ACETATE [Concomitant]
     Active Substance: HYDROCORTISONE ACETATE
  10. HYDROMORPHONE HCL [Concomitant]
     Active Substance: HYDROMORPHONE HYDROCHLORIDE
  11. NEBIVOLOL [Concomitant]
     Active Substance: NEBIVOLOL
  12. CALCIUM CITRATE [Concomitant]
     Active Substance: CALCIUM CITRATE
  13. EPINEPHRINE [Concomitant]
     Active Substance: EPINEPHRINE
  14. XOLAIR [Concomitant]
     Active Substance: OMALIZUMAB
     Indication: Mastocytosis
  15. XOLAIR [Concomitant]
     Active Substance: OMALIZUMAB
     Indication: Angioedema
  16. ARNUITY ELLIPTA [Concomitant]
     Active Substance: FLUTICASONE FUROATE
  17. NEBIVOLOL [Concomitant]
     Active Substance: NEBIVOLOL
  18. BETAMETHASONE CLOTRIMAZOLE [Concomitant]
     Active Substance: BETAMETHASONE DIPROPIONATE\CLOTRIMAZOLE
  19. LILETTA [Concomitant]
     Active Substance: LEVONORGESTREL
  20. RESTASIS [Concomitant]
     Active Substance: CYCLOSPORINE
  21. BUSPIRONE [Concomitant]
     Active Substance: BUSPIRONE HYDROCHLORIDE
  22. ELETRIPTAN [Concomitant]
     Active Substance: ELETRIPTAN
  23. CITRUCEL [Concomitant]
     Active Substance: METHYLCELLULOSE (4000 CPS)
  24. BACLOFEN [Concomitant]
     Active Substance: BACLOFEN
  25. CETIRIZINE [Concomitant]
     Active Substance: CETIRIZINE HYDROCHLORIDE
  26. GABAPENTIN [Concomitant]
     Active Substance: GABAPENTIN
  27. NORTRIPTYLINE HYDROCHLORIDE [Concomitant]
     Active Substance: NORTRIPTYLINE HYDROCHLORIDE
  28. FENTANYL [Concomitant]
     Active Substance: FENTANYL
  29. LEVALBUTEROL TARTRATE [Concomitant]
     Active Substance: LEVALBUTEROL TARTRATE
  30. CLOBETASOL PROPIONATE [Concomitant]
     Active Substance: CLOBETASOL PROPIONATE
  31. ONDANSETRON [Concomitant]
     Active Substance: ONDANSETRON
  32. DEXILANT [Concomitant]
     Active Substance: DEXLANSOPRAZOLE
  33. HYDROXYZINE [Concomitant]
     Active Substance: HYDROXYZINE HYDROCHLORIDE
  34. MIRALAX [Concomitant]
     Active Substance: POLYETHYLENE GLYCOL 3350
  35. FLUCONAZOLE [Concomitant]
     Active Substance: FLUCONAZOLE
  36. ERYTHROMYCIN [Concomitant]
     Active Substance: ERYTHROMYCIN
  37. VITAMIN D3 [Concomitant]
     Active Substance: CHOLECALCIFEROL
  38. FAMOTIDINE [Concomitant]
     Active Substance: FAMOTIDINE
  39. MOTEGRITY [Concomitant]
     Active Substance: PRUCALOPRIDE SUCCINATE
  40. CLONAZEPAM [Concomitant]
     Active Substance: CLONAZEPAM
  41. CHLORZOXAZONE [Concomitant]
     Active Substance: CHLORZOXAZONE
  42. METHYLPHENIDATE [Concomitant]
     Active Substance: METHYLPHENIDATE
  43. TIROSINT [Concomitant]
     Active Substance: LEVOTHYROXINE SODIUM
  44. PYRIDOSTIGMINE BROMIDE [Concomitant]
     Active Substance: PYRIDOSTIGMINE BROMIDE
  45. CROMOLYN SODIUM [Concomitant]
     Active Substance: CROMOLYN SODIUM
  46. LEVOCETIRIZINE DIHYDROCHLORIDE [Concomitant]
     Active Substance: LEVOCETIRIZINE DIHYDROCHLORIDE
  47. ACETAMINOPHEN [Concomitant]
     Active Substance: ACETAMINOPHEN
  48. LOTEPREDNOL ETABONATE [Concomitant]
     Active Substance: LOTEPREDNOL ETABONATE
  49. BUSPIRONE HCL [Concomitant]
     Active Substance: BUSPIRONE HYDROCHLORIDE
  50. PROMETHAZINE HYDROCHLORIDE [Concomitant]
     Active Substance: PROMETHAZINE HYDROCHLORIDE
  51. BENADRYL [Concomitant]
     Active Substance: DIPHENHYDRAMINE HYDROCHLORIDE
  52. SOLU-CORTEF [Concomitant]
     Active Substance: HYDROCORTISONE SODIUM SUCCINATE
  53. Lmx [Concomitant]
  54. CETIRIZINE HCL [Concomitant]
     Active Substance: CETIRIZINE HYDROCHLORIDE
  55. MONTELUKAST SODIUM [Concomitant]
     Active Substance: MONTELUKAST SODIUM
  56. ELETRIPTAN HYDROBROMIDE [Concomitant]
     Active Substance: ELETRIPTAN HYDROBROMIDE
  57. HYDROXYZINE HYDROCHLORIDE [Concomitant]
     Active Substance: HYDROXYZINE HYDROCHLORIDE
  58. ONDANSETRON HYDROCHLORIDE [Concomitant]
     Active Substance: ONDANSETRON HYDROCHLORIDE

REACTIONS (45)
  - Haemorrhage [Unknown]
  - Mast cell activation syndrome [Unknown]
  - Pituitary tumour [Unknown]
  - Seizure [Unknown]
  - Gastrointestinal disorder [Unknown]
  - Product dose omission issue [Unknown]
  - Stress [Unknown]
  - Infusion site pain [Unknown]
  - Headache [Unknown]
  - Pruritus [Unknown]
  - Nausea [Unknown]
  - Respiratory tract infection [Unknown]
  - Needle issue [Unknown]
  - Dermatitis contact [Unknown]
  - Sensitive skin [Unknown]
  - Weight increased [Unknown]
  - Intervertebral disc disorder [Unknown]
  - Liver disorder [Unknown]
  - Complication associated with device [Unknown]
  - Infusion site discharge [Recovered/Resolved]
  - Catheter site urticaria [Unknown]
  - Head injury [Unknown]
  - Concussion [Unknown]
  - Multiple allergies [Not Recovered/Not Resolved]
  - Gastroenteritis viral [Unknown]
  - Food poisoning [Unknown]
  - Nasopharyngitis [Unknown]
  - Suspected COVID-19 [Unknown]
  - Petechiae [Unknown]
  - Ear infection [Unknown]
  - Medical device site haemorrhage [Unknown]
  - Inappropriate schedule of product administration [Unknown]
  - Endocrine disorder [Unknown]
  - Seasonal allergy [Unknown]
  - Asthma [Unknown]
  - Infusion site rash [Unknown]
  - Sinusitis [Recovering/Resolving]
  - Infusion site haemorrhage [Unknown]
  - Infusion site haematoma [Unknown]
  - Influenza like illness [Unknown]
  - Infusion site erythema [Unknown]
  - Infusion site swelling [Unknown]
  - Hypersensitivity [Unknown]
  - Hyperhidrosis [Unknown]
  - Pyrexia [Unknown]
